FAERS Safety Report 6277355-9 (Version None)
Quarter: 2009Q3

REPORT INFORMATION
  Report Type: 
  Country: None (occurrence: None)
  Receive Date: 20090722
  Receipt Date: 20090422
  Transmission Date: 20100115
  Serious: No
  Sender: FDA-Public Use
  Company Number: US-BRISTOL-MYERS SQUIBB COMPANY-14592083

PATIENT
  Sex: Female

DRUGS (1)
  1. COUMADIN [Suspect]
     Dates: start: 20080101

REACTIONS (3)
  - INFLAMMATION [None]
  - OEDEMA PERIPHERAL [None]
  - SKIN DISCOLOURATION [None]
